FAERS Safety Report 13753212 (Version 2)
Quarter: 2017Q4

REPORT INFORMATION
  Report Type: Report from Study
  Country: US (occurrence: US)
  Receive Date: 20170713
  Receipt Date: 20171013
  Transmission Date: 20180320
  Serious: Yes (Life-Threatening, Other)
  Sender: FDA-Public Use
  Company Number: US-JNJFOC-20170706536

PATIENT
  Age: 65 Year
  Sex: Male

DRUGS (14)
  1. ACYCLOVIR. [Concomitant]
     Active Substance: ACYCLOVIR
     Indication: ORAL HERPES
     Route: 048
     Dates: start: 20161108
  2. CYTARABINE. [Suspect]
     Active Substance: CYTARABINE
     Indication: ACUTE MYELOID LEUKAEMIA
     Dosage: CONTINUOUS ON DAYS 1-4
     Route: 042
     Dates: start: 20170608, end: 20170611
  3. ZYLOPRIM [Concomitant]
     Active Substance: ALLOPURINOL
     Indication: GOUT
     Route: 048
     Dates: start: 201605
  4. PEPCID [Concomitant]
     Active Substance: FAMOTIDINE
     Indication: OESOPHAGITIS
     Route: 048
     Dates: start: 20161104
  5. ATIVAN [Concomitant]
     Active Substance: LORAZEPAM
     Indication: INSOMNIA
     Dosage: 0.5 UNK, QD (AS NEEDED)
     Route: 048
  6. ATIVAN [Concomitant]
     Active Substance: LORAZEPAM
     Indication: ANXIETY
     Dosage: 0.5 UNK, QD (AS NEEDED)
     Route: 048
  7. IBRUTINIB [Suspect]
     Active Substance: IBRUTINIB
     Indication: ACUTE MYELOID LEUKAEMIA
     Dosage: X 21 DAYS
     Route: 048
     Dates: start: 20170608, end: 20170718
  8. GENGRAF [Concomitant]
     Active Substance: CYCLOSPORINE
     Indication: PROPHYLAXIS AGAINST TRANSPLANT REJECTION
     Route: 048
     Dates: start: 20161125
  9. BACTRIM [Concomitant]
     Active Substance: SULFAMETHOXAZOLE\TRIMETHOPRIM
     Indication: PROPHYLAXIS
     Dosage: 80-400 MG
     Route: 048
     Dates: start: 20161222, end: 20170621
  10. ACYCLOVIR. [Concomitant]
     Active Substance: ACYCLOVIR
     Indication: PROPHYLAXIS
     Route: 048
     Dates: start: 20161108
  11. CHOLECALCIFEROL [Concomitant]
     Active Substance: CHOLECALCIFEROL
     Indication: SUPPLEMENTATION THERAPY
     Route: 048
     Dates: start: 201605
  12. IDARUBICIN [Suspect]
     Active Substance: IDARUBICIN
     Indication: ACUTE MYELOID LEUKAEMIA
     Dosage: DAYS 1-3
     Route: 042
     Dates: start: 20170608, end: 20170611
  13. NORVASC [Concomitant]
     Active Substance: AMLODIPINE BESYLATE
     Indication: HYPERTENSION
     Route: 048
     Dates: start: 20161208
  14. MAGNESIUM OXIDE. [Concomitant]
     Active Substance: MAGNESIUM OXIDE
     Indication: SUPPLEMENTATION THERAPY
     Route: 048
     Dates: start: 201611

REACTIONS (3)
  - Colitis [Recovered/Resolved]
  - Febrile neutropenia [Recovered/Resolved]
  - Sepsis [Recovered/Resolved]

NARRATIVE: CASE EVENT DATE: 20170612
